FAERS Safety Report 8834695 (Version 2)
Quarter: 2012Q4

REPORT INFORMATION
  Report Type: Report from Study
  Country: FR (occurrence: FR)
  Receive Date: 20121010
  Receipt Date: 20121102
  Transmission Date: 20130627
  Serious: Yes (Other)
  Sender: FDA-Public Use
  Company Number: FR-ROCHE-1142330

PATIENT
  Age: 46 Year
  Sex: Female
  Weight: 52 kg

DRUGS (13)
  1. TRASTUZUMAB [Suspect]
     Indication: BREAST CANCER
     Dosage: loading dose
     Route: 042
     Dates: start: 20120814
  2. TRASTUZUMAB [Suspect]
     Dosage: maintanence dose, Date of last dose prior to SAE: 05/Sep/2012
     Route: 042
     Dates: end: 20120926
  3. TRASTUZUMAB [Suspect]
     Dosage: restarted
     Route: 042
     Dates: start: 20121017
  4. DOCETAXEL [Suspect]
     Indication: BREAST CANCER
     Dosage: Date of last dose prior to SAE: 05/Sep/2012
     Route: 042
     Dates: start: 20120815, end: 20120926
  5. CYCLOPHOSPHAMIDE [Suspect]
     Indication: BREAST CANCER
     Dosage: Date of last dose prior to SAE: 25/jul/2012
     Route: 042
     Dates: start: 20120613
  6. EPIRUBICIN [Suspect]
     Indication: BREAST CANCER
     Dosage: Date of last dose prior to SAE: 25/Jul/2012
     Route: 042
     Dates: start: 20120613
  7. 5-FLUOROURACIL [Suspect]
     Indication: BREAST CANCER
     Dosage: Date of last dose prior to SAE: 25/JUL/2012
     Route: 042
     Dates: start: 20120613
  8. CORTANCYL [Concomitant]
     Route: 065
     Dates: start: 20120613
  9. VOGALENE [Concomitant]
     Route: 065
     Dates: start: 20120613
  10. NEULASTA [Concomitant]
     Route: 065
     Dates: start: 20120708
  11. PERTUZUMAB [Suspect]
     Indication: BREAST CANCER
     Dosage: Loading dose
     Route: 042
     Dates: start: 20120814, end: 20120926
  12. PERTUZUMAB [Suspect]
     Dosage: maintanance dose, Date of last dose prior to SAE: 05/Sep/2012
     Route: 042
  13. PERTUZUMAB [Suspect]
     Dosage: restarted
     Route: 042
     Dates: start: 20121017

REACTIONS (1)
  - Pericardial effusion [Not Recovered/Not Resolved]
